FAERS Safety Report 5752649-1 (Version None)
Quarter: 2008Q2

REPORT INFORMATION
  Report Type: 
  Country: None (occurrence: None)
  Receive Date: 20080529
  Receipt Date: 20080521
  Transmission Date: 20081010
  Serious: Yes (Other)
  Sender: FDA-Public Use
  Company Number: JP-SANOFI-SYNTHELABO-F01200800166

PATIENT
  Sex: Male
  Weight: 78 kg

DRUGS (6)
  1. URINORM [Concomitant]
     Dosage: 200 MG
     Route: 048
     Dates: start: 20011005
  2. OLMETEC [Concomitant]
     Indication: HYPERTENSION
     Dosage: 40 MG
     Route: 048
     Dates: start: 20061205
  3. PANALDINE [Concomitant]
     Dosage: 200 MG
     Route: 048
     Dates: start: 19931203
  4. PANALDINE [Concomitant]
     Dosage: 100 MG
     Route: 048
     Dates: start: 20060328, end: 20070731
  5. MEVALOTIN [Suspect]
     Indication: HYPERLIPIDAEMIA
     Dosage: 40 MG
     Route: 048
     Dates: start: 20060718, end: 20071225
  6. CLOPIDOGREL [Suspect]
     Indication: LACUNAR INFARCTION
     Route: 048
     Dates: start: 20070731

REACTIONS (1)
  - BLOOD CREATINE PHOSPHOKINASE INCREASED [None]
